FAERS Safety Report 6938047-3 (Version None)
Quarter: 2010Q3

REPORT INFORMATION
  Report Type: 
  Country: None (occurrence: None)
  Receive Date: 20100823
  Receipt Date: 20100823
  Transmission Date: 20110219
  Serious: Yes (Hospitalization)
  Sender: FDA-Public Use
  Company Number: None

PATIENT
  Sex: Male
  Weight: 92.8 kg

DRUGS (2)
  1. GEMCITABINE HCL [Suspect]
     Dosage: 12540 MG
  2. TARCEVA [Suspect]
     Dosage: 4200 MG

REACTIONS (8)
  - BLOOD CULTURE POSITIVE [None]
  - BODY TEMPERATURE INCREASED [None]
  - CARDIAC VALVE VEGETATION [None]
  - ENTEROCOCCAL INFECTION [None]
  - LOSS OF CONSCIOUSNESS [None]
  - PRESYNCOPE [None]
  - PROCEDURAL COMPLICATION [None]
  - SYNCOPE [None]
